FAERS Safety Report 14881640 (Version 1)
Quarter: 2018Q2

REPORT INFORMATION
  Report Type: Spontaneous
  Country: FR (occurrence: FR)
  Receive Date: 20180511
  Receipt Date: 20180511
  Transmission Date: 20180711
  Serious: Yes (Other)
  Sender: FDA-Public Use
  Company Number: FR-SA-2018SA126037

PATIENT
  Age: 20 Year
  Sex: Female

DRUGS (1)
  1. AUBAGIO [Suspect]
     Active Substance: TERIFLUNOMIDE
     Indication: MULTIPLE SCLEROSIS
     Route: 048

REACTIONS (6)
  - General physical health deterioration [Unknown]
  - Vomiting [Unknown]
  - Alopecia [Unknown]
  - Nausea [Unknown]
  - Drug ineffective [Unknown]
  - Multiple sclerosis relapse [Unknown]
